FAERS Safety Report 8625062 (Version 5)
Quarter: 2013Q2

REPORT INFORMATION
  Report Type: Report from Study
  Country: US (occurrence: US)
  Receive Date: 20120620
  Receipt Date: 20130401
  Transmission Date: 20140414
  Serious: Yes (Congenital Anomaly)
  Sender: FDA-Public Use
  Company Number: US-GILEAD-2012-0056143

PATIENT
  Sex: Female

DRUGS (5)
  1. EMTRICITABINE/TENOFOVIR DISOPROXIL FUMARATE [Suspect]
     Indication: HIV INFECTION
     Dosage: 1 DF, QD
     Route: 064
     Dates: start: 20120125
  2. REYATAZ [Suspect]
     Indication: HIV INFECTION
     Dosage: 300 MG, QD
     Route: 064
     Dates: start: 20120125
  3. RITONAVIR [Suspect]
     Indication: HIV INFECTION
     Dosage: 100 MG, QD
     Route: 064
     Dates: start: 20120125
  4. ZIDOVUDINE [Suspect]
     Indication: ANTIRETROVIRAL THERAPY
     Dosage: 2 MG/KG, Q1HR
     Route: 064
     Dates: start: 20120522, end: 20120522
  5. ZIDOVUDINE [Suspect]
     Dosage: 1 MG/KG, Q1HR
     Dates: start: 20120522, end: 20120522

REACTIONS (6)
  - Syndactyly [Unknown]
  - Congenital hand malformation [Unknown]
  - Patent ductus arteriosus [Unknown]
  - Pulmonary hypertension [Unknown]
  - Ventricular septal defect [Unknown]
  - Single umbilical artery [Unknown]
